FAERS Safety Report 21017276 (Version 1)
Quarter: 2022Q2

REPORT INFORMATION
  Report Type: Spontaneous
  Country: US (occurrence: None)
  Receive Date: 20220627
  Receipt Date: 20220627
  Transmission Date: 20220721
  Serious: No
  Sender: FDA-Public Use
  Company Number: None

PATIENT
  Age: 50 Year
  Sex: Female

DRUGS (1)
  1. HUMIRA [Suspect]
     Active Substance: ADALIMUMAB
     Indication: Rheumatoid arthritis
     Dosage: OTHER FREQUENCY : BI-WEEKLY;?
     Route: 058
     Dates: start: 20220204, end: 20220623

REACTIONS (1)
  - Rotator cuff tear arthropathy [None]

NARRATIVE: CASE EVENT DATE: 20220627
